FAERS Safety Report 8436758-4 (Version None)
Quarter: 2012Q2

REPORT INFORMATION
  Report Type: 
  Country: None (occurrence: None)
  Receive Date: 20120614
  Receipt Date: 20120606
  Transmission Date: 20120825
  Serious: Yes (Hospitalization)
  Sender: FDA-Public Use
  Company Number: GB-JNJFOC-20100704492

PATIENT
  Sex: Female
  Weight: 69 kg

DRUGS (15)
  1. ADCAL-D3 [Concomitant]
     Route: 048
  2. PLACEBO [Suspect]
     Indication: RHEUMATOID ARTHRITIS
     Route: 058
     Dates: start: 20070403
  3. LANSOPRAZOLE [Concomitant]
     Route: 048
     Dates: start: 20070923
  4. GOLIMUMAB [Suspect]
     Route: 058
     Dates: start: 20070724
  5. ARCOXIA [Concomitant]
     Route: 048
  6. AMITRIPTYLINE HCL [Concomitant]
     Route: 048
  7. IBUPROFEN [Concomitant]
     Route: 048
     Dates: start: 20070501
  8. DESOGESTREL AND ETHINYL ESTRADIOL [Concomitant]
     Route: 048
  9. ACETAMINOPHEN [Concomitant]
     Route: 048
     Dates: start: 20100712
  10. NAPROXEN [Concomitant]
     Route: 048
     Dates: start: 20070712
  11. PREDNISOLONE [Concomitant]
     Route: 048
  12. ATENOLOL [Concomitant]
     Route: 048
  13. ACETAMINOPHEN [Concomitant]
     Route: 048
     Dates: start: 20070703
  14. GOLIMUMAB [Suspect]
     Indication: RHEUMATOID ARTHRITIS
     Route: 058
     Dates: start: 20100713
  15. TRAMADOL HCL [Concomitant]
     Route: 048
     Dates: start: 20070615

REACTIONS (1)
  - PLEURAL DISORDER [None]
